FAERS Safety Report 16697162 (Version 4)
Quarter: 2020Q2

REPORT INFORMATION
  Report Type: Spontaneous
  Country: US (occurrence: US)
  Receive Date: 20190813
  Receipt Date: 20200623
  Transmission Date: 20200713
  Serious: No
  Sender: FDA-Public Use
  Company Number: US-PFIZER INC-2019343803

PATIENT
  Age: 63 Year
  Sex: Male
  Weight: 122.45 kg

DRUGS (1)
  1. CLEOCIN [Suspect]
     Active Substance: CLINDAMYCIN PHOSPHATE
     Dosage: UNK
     Dates: start: 20180118

REACTIONS (1)
  - Pain [Unknown]
